FAERS Safety Report 10456165 (Version 1)
Quarter: 2014Q3

REPORT INFORMATION
  Report Type: Spontaneous
  Country: US (occurrence: None)
  Receive Date: 20140820
  Receipt Date: 20140820
  Transmission Date: 20150326
  Serious: Yes (Other)
  Sender: FDA-Public Use
  Company Number: 2097988

PATIENT
  Age: 51 Year
  Sex: Male
  Weight: 103.83 kg

DRUGS (22)
  1. (COLACE) [Concomitant]
  2. (OLANZAPINE) [Concomitant]
  3. TOBRAMYCIN [Suspect]
     Active Substance: TOBRAMYCIN
     Indication: SEPSIS
     Dates: start: 20131121
  4. (VITAMIN D /00107901/) [Concomitant]
  5. (COUMADIN /00014802/) [Concomitant]
  6. (OXYCODONE) [Concomitant]
     Active Substance: OXYCODONE
  7. (NICOTINE) [Concomitant]
  8. (FLUOXETINE) [Concomitant]
  9. (OXYCONTIN) [Concomitant]
  10. (MULTIVITAMINS) [Concomitant]
  11. (MIRALAX /00754501/) [Concomitant]
  12. (OXYCODONE) [Concomitant]
     Active Substance: OXYCODONE
  13. (FERROUS SULFATE) [Concomitant]
  14. (CLONAZEPAM) [Concomitant]
  15. (FINASTERIDE) [Concomitant]
  16. (POTASSIUM) [Concomitant]
  17. (PHENYTOIN) [Concomitant]
  18. (FOLIC ACID) [Concomitant]
  19. (LEVETIRACETAM) [Concomitant]
  20. TOBRAMYCIN [Suspect]
     Active Substance: TOBRAMYCIN
     Indication: ARTHRITIS BACTERIAL
     Dates: start: 20131121
  21. (OXYBUTYNIN) [Concomitant]
  22. (ASPIRIN) [Concomitant]

REACTIONS (1)
  - Renal tubular necrosis [None]

NARRATIVE: CASE EVENT DATE: 20131121
